FAERS Safety Report 7068261-0 (Version None)
Quarter: 2010Q4

REPORT INFORMATION
  Report Type: 
  Country: None (occurrence: None)
  Receive Date: 20101028
  Receipt Date: 20101018
  Transmission Date: 20110411
  Serious: Yes (Other)
  Sender: FDA-Public Use
  Company Number: US-ROCHE-735252

PATIENT
  Age: 58 Year
  Sex: Male

DRUGS (8)
  1. ALL-TRANS-RETINOIC ACID [Suspect]
     Dosage: INDUCTION CHEMOTHERAPY
     Route: 065
  2. ALL-TRANS-RETINOIC ACID [Suspect]
     Dosage: MAINTENANCE THERAPY
     Route: 065
  3. CYTARABINE [Suspect]
     Dosage: INDUCTION CHEMOTHERAPY
     Route: 065
  4. IDARUBICIN HCL [Suspect]
     Dosage: INDUCTION CHEMOTHERAPY
     Route: 065
  5. IDARUBICIN HCL [Suspect]
     Dosage: CONSOLIDATION CHEMOTHERAPY
     Route: 065
     Dates: start: 20060301
  6. IDARUBICIN HCL [Suspect]
     Dosage: CONSOLIDATION CHEMOTHERAPY
     Route: 065
     Dates: start: 20060501
  7. 6-MERCAPTOPURINE [Suspect]
     Dosage: MAINTENANCE THERAPY.
     Route: 065
  8. METHOTREXATE [Suspect]
     Dosage: MAINTENANCE THERAPY
     Route: 065

REACTIONS (2)
  - LUNG NEOPLASM [None]
  - METASTATIC RENAL CELL CARCINOMA [None]
